FAERS Safety Report 22536397 (Version 1)
Quarter: 2023Q2

REPORT INFORMATION
  Report Type: Spontaneous
  Country: US (occurrence: None)
  Receive Date: 20230607
  Receipt Date: 20230607
  Transmission Date: 20230721
  Serious: Yes (Other)
  Sender: FDA-Public Use
  Company Number: None

PATIENT
  Age: 18 Year
  Sex: Female

DRUGS (14)
  1. BOTOX [Suspect]
     Active Substance: ONABOTULINUMTOXINA
     Indication: Migraine
     Dosage: OTHER QUANTITY : 200 UNIT;?OTHER FREQUENCY : EVERY 3 MONTHS;?
     Dates: start: 20211012
  2. BOTOX [Suspect]
     Active Substance: ONABOTULINUMTOXINA
     Dosage: OTHER FREQUENCY : EVERY 3 MONTHS;?
  3. ALBUTEROL AER HFA [Concomitant]
  4. ALBUTEROL [Concomitant]
     Active Substance: ALBUTEROL
  5. AZITHROMYCIN [Concomitant]
  6. DIAZEPAM [Concomitant]
  7. FLUCONAZOLE [Concomitant]
  8. ACETAMINOPHEN\HYDROCODONE [Concomitant]
     Active Substance: ACETAMINOPHEN\HYDROCODONE
  9. LO LOSETRIN [Concomitant]
  10. ONDANSETRON [Concomitant]
  11. OXYCODONE [Concomitant]
  12. SUMATRIPTAN [Concomitant]
  13. TOBRAMYCIN SOL [Concomitant]
  14. TOPIRAMATE [Concomitant]
     Active Substance: TOPIRAMATE

REACTIONS (2)
  - Hysterectomy [None]
  - Pelvic floor repair [None]
